FAERS Safety Report 25563113 (Version 1)
Quarter: 2025Q3

REPORT INFORMATION
  Report Type: Spontaneous
  Country: US (occurrence: US)
  Receive Date: 20250716
  Receipt Date: 20250716
  Transmission Date: 20251021
  Serious: No
  Sender: NOVO NORDISK
  Company Number: US-NOVOPROD-1286723

PATIENT
  Sex: Female

DRUGS (2)
  1. OZEMPIC [Suspect]
     Active Substance: SEMAGLUTIDE
     Route: 058
  2. OZEMPIC [Suspect]
     Active Substance: SEMAGLUTIDE
     Indication: Diabetes mellitus management
     Route: 058

REACTIONS (5)
  - Feeling jittery [Unknown]
  - Nausea [Unknown]
  - Dizziness [Unknown]
  - Drug hypersensitivity [Unknown]
  - Off label use [Unknown]
